FAERS Safety Report 9858931 (Version 1)
Quarter: 2014Q1

REPORT INFORMATION
  Report Type: Spontaneous
  Country: US (occurrence: US)
  Receive Date: 20140131
  Receipt Date: 20140131
  Transmission Date: 20141002
  Serious: Yes (Other)
  Sender: FDA-Public Use
  Company Number: US-ABBVIE-14P-163-1194330-00

PATIENT
  Age: 31 Year
  Sex: Male

DRUGS (3)
  1. SEVOFLURANE [Suspect]
     Indication: ANAESTHESIA
  2. MIDAZOLAM [Concomitant]
     Indication: SURGERY
     Route: 042
  3. FENTANYL [Concomitant]
     Indication: SURGERY
     Route: 042

REACTIONS (1)
  - Pulmonary alveolar haemorrhage [Recovered/Resolved]
